FAERS Safety Report 9426888 (Version 1)
Quarter: 2013Q3

REPORT INFORMATION
  Report Type: Spontaneous
  Country: US (occurrence: US)
  Receive Date: 20130730
  Receipt Date: 20130730
  Transmission Date: 20140515
  Serious: No
  Sender: FDA-Public Use
  Company Number: US-SANOFI-AVENTIS-2013SA038443

PATIENT
  Age: 64 Year
  Sex: Male

DRUGS (3)
  1. AMBIEN CR [Suspect]
     Indication: INSOMNIA
  2. ECOTRIN [Interacting]
     Indication: DISCOMFORT
     Dosage: PRN AT BEDTIME
     Dates: start: 201212
  3. ATENOLOL [Concomitant]

REACTIONS (2)
  - Therapeutic response decreased [Unknown]
  - Drug interaction [Unknown]
